FAERS Safety Report 7002255-6 (Version None)
Quarter: 2010Q3

REPORT INFORMATION
  Report Type: 
  Country: None (occurrence: None)
  Receive Date: 20100920
  Receipt Date: 20070619
  Transmission Date: 20110219
  Serious: Yes (Hospitalization)
  Sender: FDA-Public Use
  Company Number: US-ASTRAZENECA-2006UW11459

PATIENT
  Age: 20056 Day
  Sex: Female
  Weight: 94.3 kg

DRUGS (7)
  1. SEROQUEL [Suspect]
     Indication: SCHIZOPHRENIA
     Dosage: 25-100 MG
     Route: 048
     Dates: start: 20010628
  2. SEROQUEL [Suspect]
     Indication: DEPRESSION
     Dosage: 25-100 MG
     Route: 048
     Dates: start: 20010628
  3. SEROQUEL [Suspect]
     Dosage: 25 MG, 75 MG
     Route: 048
     Dates: start: 20010702, end: 20010924
  4. SEROQUEL [Suspect]
     Dosage: 25 MG, 75 MG
     Route: 048
     Dates: start: 20010702, end: 20010924
  5. ZYPREXA [Suspect]
  6. RISPERDAL [Concomitant]
     Dosage: 2 MG, 2X AT BEDTIME
     Dates: start: 20010730
  7. METOPROLOL [Concomitant]
     Dates: start: 20030809

REACTIONS (3)
  - DIABETIC KETOACIDOSIS [None]
  - PANCREATITIS [None]
  - TYPE 2 DIABETES MELLITUS [None]
